FAERS Safety Report 14347865 (Version 3)
Quarter: 2018Q1

REPORT INFORMATION
  Report Type: Spontaneous
  Country: LT (occurrence: LT)
  Receive Date: 20180103
  Receipt Date: 20180309
  Transmission Date: 20180509
  Serious: Yes (Life-Threatening, Hospitalization)
  Sender: FDA-Public Use
  Company Number: LT-ARALEZ PHARMACEUTICALS R+D INC.-2017-ARA-002130

PATIENT
  Age: 53 Year
  Sex: Female

DRUGS (15)
  1. PEMETREXED. [Interacting]
     Active Substance: PEMETREXED
     Indication: PLEURAL MESOTHELIOMA
     Dosage: UNK (SECOND CYCLE SECOND)
     Dates: start: 2016, end: 2016
  2. ALPRAZOLAM. [Interacting]
     Active Substance: ALPRAZOLAM
     Indication: ANXIETY DISORDER
     Dosage: 0.5 MG, QD (LONG-TERM USE)
     Route: 048
  3. ONDANSETRON [Interacting]
     Active Substance: ONDANSETRON
     Indication: PROPHYLAXIS OF NAUSEA AND VOMITING
     Dosage: 8 MG, QD
     Route: 048
     Dates: start: 2016
  4. TIANEPTINE [Interacting]
     Active Substance: TIANEPTINE
     Indication: DEPRESSION
     Dosage: 12.5 MG, QD (LONG-TERM USE)
     Route: 048
  5. CYANOCOBALAMIN. [Interacting]
     Active Substance: CYANOCOBALAMIN
     Indication: PREMEDICATION
     Dosage: 1000 U/G, UNK
     Route: 042
  6. MANNITOL. [Interacting]
     Active Substance: MANNITOL
     Indication: DRUG TOXICITY PROPHYLAXIS
     Dosage: 1000 ML, QD
     Route: 042
     Dates: start: 2016
  7. TRAMADOL. [Interacting]
     Active Substance: TRAMADOL
     Indication: PAIN MANAGEMENT
     Dosage: 100 MG, QD (LONG-TERM USE)
     Route: 048
  8. FENTANYL. [Interacting]
     Active Substance: FENTANYL
     Indication: PAIN MANAGEMENT
     Dosage: UNK, DAILY (75 UG/H, LONG-TERM USE)
     Route: 061
  9. CISPLATIN. [Interacting]
     Active Substance: CISPLATIN
     Indication: PLEURAL MESOTHELIOMA
     Dosage: 150 MG, QD II CYCLE (AFTER 6 PREVIOUS CYCLES OF CISPLATIN AND PEMETREXED)
     Route: 042
     Dates: start: 201611, end: 2016
  10. FOLIC ACID. [Interacting]
     Active Substance: FOLIC ACID
     Indication: PREMEDICATION
     Dosage: 1000 U/G, QD
     Route: 042
  11. VITAMINS NOS [Interacting]
     Active Substance: VITAMINS
     Indication: PRODUCT USED FOR UNKNOWN INDICATION
     Dosage: 7.5 ML, QD
     Route: 048
     Dates: start: 2016
  12. TIANEPTINE [Interacting]
     Active Substance: TIANEPTINE
     Indication: PAIN MANAGEMENT
  13. APREPITANT. [Interacting]
     Active Substance: APREPITANT
     Indication: PROPHYLAXIS OF NAUSEA AND VOMITING
     Dosage: 125 MG, QD
     Route: 048
     Dates: start: 2016
  14. METOPROLOL SUCCINATE. [Suspect]
     Active Substance: METOPROLOL SUCCINATE
     Indication: HYPERTENSION
     Dosage: 47.5 MG, QD (LONG-TERM USE)
     Route: 048
  15. DEXAMETHASONE. [Interacting]
     Active Substance: DEXAMETHASONE
     Indication: PREMEDICATION
     Dosage: 4 MG (8 TABLETS), QD
     Route: 048
     Dates: start: 2016

REACTIONS (3)
  - Cardio-respiratory arrest [Recovering/Resolving]
  - Drug interaction [Recovering/Resolving]
  - Circulatory collapse [Recovering/Resolving]
